FAERS Safety Report 9848488 (Version 1)
Quarter: 2013Q4

REPORT INFORMATION
  Report Type: Spontaneous
  Country: US (occurrence: None)
  Receive Date: 20131224
  Receipt Date: 20131224
  Transmission Date: 20140711
  Serious: Yes (Life-Threatening, Hospitalization)
  Sender: FDA-Public Use
  Company Number: PHEH2012US023720

PATIENT
  Sex: Male

DRUGS (2)
  1. CLOZARIL (CLOZAPINE) UNKNOWN [Suspect]
  2. PRILOSEC (OMEPRAZOLE) [Concomitant]

REACTIONS (2)
  - Pneumonia aspiration [None]
  - Vomiting [None]
